FAERS Safety Report 9689714 (Version 1)
Quarter: 2013Q4

REPORT INFORMATION
  Report Type: Spontaneous
  Country: CA (occurrence: CA)
  Receive Date: 20131115
  Receipt Date: 20131115
  Transmission Date: 20140711
  Serious: Yes (Life-Threatening, Hospitalization)
  Sender: FDA-Public Use
  Company Number: CA-ROCHE-1300495

PATIENT
  Age: 28 Year
  Sex: Female

DRUGS (2)
  1. CLONAZEPAM [Suspect]
     Indication: PRODUCT USED FOR UNKNOWN INDICATION
     Route: 065
  2. OXYCONTIN [Suspect]
     Indication: PRODUCT USED FOR UNKNOWN INDICATION
     Dosage: THERAPY DURATION:  61.0 DAY(S)
     Route: 065

REACTIONS (9)
  - Coma [Unknown]
  - Drug withdrawal syndrome [Unknown]
  - Euphoric mood [Unknown]
  - Feeling hot [Unknown]
  - Intentional overdose [Unknown]
  - Loss of consciousness [Unknown]
  - Muscle spasms [Unknown]
  - Nasopharyngitis [Unknown]
  - Substance abuse [Unknown]
